FAERS Safety Report 5891641-3 (Version None)
Quarter: 2008Q3

REPORT INFORMATION
  Report Type: 
  Country: None (occurrence: None)
  Receive Date: 20080922
  Receipt Date: 20080828
  Transmission Date: 20090109
  Serious: Yes (Hospitalization)
  Sender: FDA-Public Use
  Company Number: DE-PFIZER INC-2008043871

PATIENT
  Sex: Female

DRUGS (1)
  1. SU-011,248 [Suspect]
     Indication: OVARIAN CANCER
     Route: 048
     Dates: start: 20080318

REACTIONS (2)
  - DEHYDRATION [None]
  - SUBILEUS [None]
